FAERS Safety Report 4638513-X (Version None)
Quarter: 2005Q2

REPORT INFORMATION
  Report Type: 
  Country: None (occurrence: None)
  Receive Date: 20050418
  Receipt Date: 20050406
  Transmission Date: 20051028
  Serious: Yes (Other)
  Sender: FDA-Public Use
  Company Number: 2005055537

PATIENT
  Age: 44 Year
  Sex: Male
  Weight: 63 kg

DRUGS (4)
  1. VIAGRA [Suspect]
     Indication: ERECTILE DYSFUNCTION
     Dosage: 25 MG, ORAL
     Route: 048
     Dates: start: 19990101
  2. GLATIRAMER ACETATE (GLATIRAMER ACETATE) [Concomitant]
  3. VITAMIN B  (VITAMIN B) [Concomitant]
  4. SERTRALINE HYDROCHLORIDE (SERTRALINE HYDROCHORIDE) [Concomitant]

REACTIONS (1)
  - MULTIPLE SCLEROSIS [None]
